FAERS Safety Report 4504546-7 (Version None)
Quarter: 2004Q4

REPORT INFORMATION
  Report Type: 
  Country: None (occurrence: None)
  Receive Date: 20041118
  Receipt Date: 20041116
  Transmission Date: 20050328
  Serious: Yes (Life-Threatening, Hospitalization, Other)
  Sender: FDA-Public Use
  Company Number: PHRM2004FR03346

PATIENT
  Age: 38 Year
  Sex: Male

DRUGS (2)
  1. VOLTAREN [Suspect]
     Indication: BACK PAIN
     Dosage: 2 DF, ONCE/SINGLE
     Route: 048
     Dates: start: 20040831, end: 20040831
  2. PIRACETAM [Concomitant]
     Indication: TINNITUS
     Dosage: UNK, UNK
     Route: 048
     Dates: start: 20040701

REACTIONS (13)
  - ANAPHYLACTIC SHOCK [None]
  - BLOOD PRESSURE SYSTOLIC DECREASED [None]
  - BRADYCARDIA [None]
  - DEPRESSED LEVEL OF CONSCIOUSNESS [None]
  - ERYTHEMA [None]
  - FACE OEDEMA [None]
  - FORMICATION [None]
  - HYPERHIDROSIS [None]
  - MALAISE [None]
  - OXYGEN SATURATION DECREASED [None]
  - SINUS TACHYCARDIA [None]
  - VENTRICULAR EXTRASYSTOLES [None]
  - VISUAL DISTURBANCE [None]
